FAERS Safety Report 10966362 (Version 1)
Quarter: 2015Q1

REPORT INFORMATION
  Report Type: Spontaneous
  Country: US (occurrence: US)
  Receive Date: 20150330
  Receipt Date: 20150330
  Transmission Date: 20150721
  Serious: No
  Sender: FDA-Public Use
  Company Number: US-MYLANLABS-2014S1017496

PATIENT
  Sex: Male
  Weight: 81.65 kg

DRUGS (2)
  1. FENTANYL. [Suspect]
     Active Substance: FENTANYL
     Indication: PAIN
     Dosage: 25 ?G,QH
     Route: 062
  2. FIORICET WITH CODEINE [Concomitant]
     Active Substance: ACETAMINOPHEN\BUTALBITAL\CAFFEINE\CODEINE PHOSPHATE
     Indication: PAIN
     Dosage: UNK UNK,PRN

REACTIONS (3)
  - Wrong technique in drug usage process [Not Recovered/Not Resolved]
  - Drug effect decreased [Not Recovered/Not Resolved]
  - Pain [Not Recovered/Not Resolved]
